FAERS Safety Report 13723130 (Version 2)
Quarter: 2017Q3

REPORT INFORMATION
  Report Type: Report from Study
  Country: CN (occurrence: CN)
  Receive Date: 20170706
  Receipt Date: 20170717
  Transmission Date: 20171127
  Serious: Yes (Death, Life-Threatening, Hospitalization)
  Sender: FDA-Public Use
  Company Number: CN-ASTRAZENECA-2017SE54804

PATIENT
  Age: 735 Month
  Sex: Female

DRUGS (2)
  1. TAGRISSO [Suspect]
     Active Substance: OSIMERTINIB
     Indication: NON-SMALL CELL LUNG CANCER
     Route: 048
     Dates: start: 20170407, end: 20170518
  2. ALPRAZOLAM. [Suspect]
     Active Substance: ALPRAZOLAM
     Dosage: 8.0DF ONCE/SINGLE ADMINISTRATION
     Route: 065
     Dates: start: 20170518, end: 20170518

REACTIONS (2)
  - Coma [Recovered/Resolved]
  - Amylase increased [Not Recovered/Not Resolved]

NARRATIVE: CASE EVENT DATE: 20170518
